FAERS Safety Report 20762459 (Version 2)
Quarter: 2022Q2

REPORT INFORMATION
  Report Type: Spontaneous
  Country: GB (occurrence: GB)
  Receive Date: 20220428
  Receipt Date: 20220504
  Transmission Date: 20220721
  Serious: Yes (Hospitalization)
  Sender: FDA-Public Use
  Company Number: GB-ALXN-A202112643

PATIENT
  Sex: Female

DRUGS (8)
  1. FILGRASTIM [Suspect]
     Active Substance: FILGRASTIM
     Indication: White blood cell count decreased
     Dosage: UNK
     Route: 058
  2. SOLIRIS [Suspect]
     Active Substance: ECULIZUMAB
     Indication: Atypical haemolytic uraemic syndrome
     Dosage: 900 MILLIGRAM, QWK
     Route: 042
     Dates: start: 20211029, end: 20211120
  3. SOLIRIS [Suspect]
     Active Substance: ECULIZUMAB
     Dosage: 1200 MILLIGRAM, Q2WK
     Route: 042
     Dates: start: 20211126, end: 2022
  4. SOLIRIS [Suspect]
     Active Substance: ECULIZUMAB
     Dosage: UNK
     Route: 042
     Dates: start: 2022
  5. COTRIMOXAZOLE [Concomitant]
     Active Substance: SULFAMETHOXAZOLE\TRIMETHOPRIM
     Indication: Infection
     Dosage: 480 MILLIGRAM, QD
     Route: 048
  6. PENICILLIN V [Concomitant]
     Active Substance: PENICILLIN V
     Indication: Product used for unknown indication
     Dosage: 250 MILLIGRAM, BID
     Route: 048
     Dates: start: 20220316
  7. TRIMETHOPRIM [Concomitant]
     Active Substance: TRIMETHOPRIM
     Indication: Product used for unknown indication
     Dosage: UNK
     Route: 065
  8. TRIMETHOPRIM [Concomitant]
     Active Substance: TRIMETHOPRIM

REACTIONS (36)
  - COVID-19 [Not Recovered/Not Resolved]
  - SARS-CoV-2 test positive [Unknown]
  - Pain [Unknown]
  - Procedural pain [Not Recovered/Not Resolved]
  - Fluid retention [Not Recovered/Not Resolved]
  - Limb discomfort [Not Recovered/Not Resolved]
  - Irregular breathing [Recovered/Resolved]
  - Heart rate irregular [Recovered/Resolved]
  - Urethral stent removal [Unknown]
  - Poor venous access [Not Recovered/Not Resolved]
  - Yawning [Not Recovered/Not Resolved]
  - Fistula [Unknown]
  - Musculoskeletal discomfort [Unknown]
  - Administration site pain [Unknown]
  - Administration site bruise [Not Recovered/Not Resolved]
  - Off label use [Unknown]
  - Administration site discomfort [Unknown]
  - Catheter site erythema [Unknown]
  - Abdominal discomfort [Not Recovered/Not Resolved]
  - Catheter site infection [Unknown]
  - Lethargy [Not Recovered/Not Resolved]
  - White blood cell count decreased [Unknown]
  - Sleep disorder [Not Recovered/Not Resolved]
  - Chest discomfort [Recovered/Resolved]
  - Abdominal distension [Not Recovered/Not Resolved]
  - Neck pain [Unknown]
  - Vaginal haemorrhage [Unknown]
  - Fatigue [Not Recovered/Not Resolved]
  - Nausea [Unknown]
  - Vomiting [Unknown]
  - Dyspnoea [Recovered/Resolved]
  - Cough [Unknown]
  - Pain in extremity [Unknown]
  - Arthralgia [Recovering/Resolving]
  - Blood pressure increased [Unknown]
  - Malaise [Not Recovered/Not Resolved]

NARRATIVE: CASE EVENT DATE: 20211001
